FAERS Safety Report 20972232 (Version 1)
Quarter: 2022Q2

REPORT INFORMATION
  Report Type: Spontaneous
  Country: US (occurrence: US)
  Receive Date: 20220616
  Receipt Date: 20220616
  Transmission Date: 20220720
  Serious: No
  Sender: FDA-Public Use
  Company Number: US-Blueprint Medicines Corporation-142

PATIENT
  Sex: Male

DRUGS (2)
  1. AYVAKIT [Suspect]
     Active Substance: AVAPRITINIB
     Indication: Myelodysplastic syndrome
     Route: 048
     Dates: start: 20211207
  2. AYVAKIT [Suspect]
     Active Substance: AVAPRITINIB
     Indication: Systemic mastocytosis

REACTIONS (9)
  - Ocular hyperaemia [Unknown]
  - Condition aggravated [Unknown]
  - Eye irritation [Unknown]
  - Pain [Unknown]
  - Inflammation [Unknown]
  - Tinnitus [Unknown]
  - Abdominal discomfort [Recovering/Resolving]
  - Diarrhoea [Recovering/Resolving]
  - Lacrimation increased [Unknown]
